FAERS Safety Report 4414120-9 (Version None)
Quarter: 2004Q3

REPORT INFORMATION
  Report Type: 
  Country: None (occurrence: None)
  Receive Date: 20040803
  Receipt Date: 20040630
  Transmission Date: 20050211
  Serious: Yes (Other)
  Sender: FDA-Public Use
  Company Number: JP-BRISTOL-MYERS SQUIBB COMPANY-12633780

PATIENT
  Age: 71 Year
  Sex: Female

DRUGS (3)
  1. MITOMYCIN [Suspect]
     Indication: COLORECTAL CANCER METASTATIC
     Route: 042
     Dates: start: 20020701, end: 20020701
  2. FLUOROURACIL [Suspect]
     Indication: COLORECTAL CANCER METASTATIC
     Route: 042
     Dates: start: 19980701, end: 19991001
  3. DOXIFLURIDINE [Suspect]
     Indication: COLORECTAL CANCER METASTATIC
     Route: 048
     Dates: start: 20020701, end: 20020701

REACTIONS (7)
  - BILE DUCT STENOSIS [None]
  - CHOLANGITIS [None]
  - CHOLELITHIASIS [None]
  - DILATATION INTRAHEPATIC DUCT ACQUIRED [None]
  - HEPATIC FUNCTION ABNORMAL [None]
  - LUNG CANCER METASTATIC [None]
  - PYREXIA [None]
